FAERS Safety Report 6391213-0 (Version None)
Quarter: 2009Q4

REPORT INFORMATION
  Report Type: 
  Country: None (occurrence: None)
  Receive Date: 20091007
  Receipt Date: 20090929
  Transmission Date: 20100525
  Serious: Yes (Hospitalization)
  Sender: FDA-Public Use
  Company Number: US-JNJFOC-20090908700

PATIENT
  Age: 23 Month
  Sex: Male
  Weight: 14.97 kg

DRUGS (3)
  1. TYLENOL (CAPLET) [Suspect]
     Route: 048
  2. TYLENOL (CAPLET) [Suspect]
     Indication: PYREXIA
     Dosage: ALTERNATING WITH INFANT'S MOTRIN
     Route: 048
  3. CONCENTRATED MOTRIN INFANTS [Concomitant]
     Indication: PYREXIA

REACTIONS (2)
  - CONVULSION [None]
  - TRANSMISSION OF AN INFECTIOUS AGENT VIA A MEDICINAL PRODUCT [None]
